FAERS Safety Report 5343230-7 (Version None)
Quarter: 2007Q2

REPORT INFORMATION
  Report Type: 
  Country: None (occurrence: None)
  Receive Date: 20070416
  Receipt Date: 20070206
  Transmission Date: 20071010
  Serious: No
  Sender: FDA-Public Use
  Company Number: 2007SP000416

PATIENT
  Age: 41 Year
  Sex: Female
  Weight: 52.1637 kg

DRUGS (5)
  1. LUNESTA [Suspect]
     Indication: INSOMNIA
     Dosage: SEE IMAGE
     Route: 048
     Dates: start: 20060101
  2. PROVENTIL-HFA [Concomitant]
  3. WELLBUTRIN [Concomitant]
  4. PYRIDIUM [Concomitant]
  5. ANTIBIOTICS [Concomitant]

REACTIONS (1)
  - INSOMNIA [None]
